FAERS Safety Report 16903173 (Version 1)
Quarter: 2019Q4

REPORT INFORMATION
  Report Type: Report from Study
  Country: US (occurrence: US)
  Receive Date: 20191010
  Receipt Date: 20191010
  Transmission Date: 20200122
  Serious: Yes (Hospitalization)
  Sender: FDA-Public Use
  Company Number: US-ROCHE-2422559

PATIENT
  Age: 74 Year
  Sex: Male
  Weight: 64 kg

DRUGS (4)
  1. TRASTUZUMAB. [Suspect]
     Active Substance: TRASTUZUMAB
     Dosage: OVER 30 MINUTES ON DAY 1. CYCLE 2 +. ON 23/APR/2019, LAST DOSE ADMINISTERED (384 MG).
     Route: 042
  2. PERTUZUMAB. [Suspect]
     Active Substance: PERTUZUMAB
     Dosage: OVER 30-60 MINUTES ON DAY 1. ON 23/APR/2019, LAST DOSE ADMINISTERED (420 MG).?CYCLE 2
     Route: 042
  3. TRASTUZUMAB. [Suspect]
     Active Substance: TRASTUZUMAB
     Indication: NEOPLASM MALIGNANT
     Dosage: CYCLE 1 OVER 90 MINUTES ON DAY 1.
     Route: 042
     Dates: start: 20190221
  4. PERTUZUMAB. [Suspect]
     Active Substance: PERTUZUMAB
     Indication: NEOPLASM MALIGNANT
     Dosage: CYCLE 1 OVER 60 MINUTES ON DAY 1
     Route: 042
     Dates: start: 20190221

REACTIONS (3)
  - Cholangitis [Recovering/Resolving]
  - Cholecystitis [Recovering/Resolving]
  - Bacteraemia [Recovering/Resolving]

NARRATIVE: CASE EVENT DATE: 20190517
